FAERS Safety Report 5288261-0 (Version None)
Quarter: 2007Q2

REPORT INFORMATION
  Report Type: 
  Country: None (occurrence: None)
  Receive Date: 20070405
  Receipt Date: 20070327
  Transmission Date: 20071010
  Serious: Yes (Other)
  Sender: FDA-Public Use
  Company Number: FR-ROCHE-465405

PATIENT
  Age: 13 Year
  Sex: Male
  Weight: 68 kg

DRUGS (2)
  1. ROACCUTANE [Suspect]
     Indication: ACNE
     Dosage: STARTED ON 20MG/DAY THEN PROGRESSIVELY INCREASED TO 40MG/DAY.
     Route: 048
     Dates: start: 20051101
  2. ROACCUTANE [Suspect]
     Route: 048
     Dates: end: 20060615

REACTIONS (4)
  - DEPRESSION [None]
  - DRY EYE [None]
  - EPISTAXIS [None]
  - INGROWING NAIL [None]
